FAERS Safety Report 21279170 (Version 4)
Quarter: 2022Q4

REPORT INFORMATION
  Report Type: Report from Study
  Country: US (occurrence: US)
  Receive Date: 20220901
  Receipt Date: 20221213
  Transmission Date: 20230113
  Serious: Yes (Other)
  Sender: FDA-Public Use
  Company Number: US-NOVARTISTESTPH-NVSC2022US196264

PATIENT
  Sex: Male

DRUGS (1)
  1. GILENYA [Suspect]
     Active Substance: FINGOLIMOD HYDROCHLORIDE
     Indication: Product used for unknown indication
     Dosage: UNK
     Route: 065
     Dates: end: 20221015

REACTIONS (5)
  - Osteonecrosis [Unknown]
  - Neuralgia [Recovering/Resolving]
  - Paraesthesia [Unknown]
  - Lymphocyte count decreased [Unknown]
  - Headache [Unknown]
